FAERS Safety Report 16213618 (Version 2)
Quarter: 2019Q2

REPORT INFORMATION
  Report Type: Spontaneous
  Country: GB (occurrence: JP)
  Receive Date: 20190418
  Receipt Date: 20190507
  Transmission Date: 20190711
  Serious: Yes (Other)
  Sender: FDA-Public Use
  Company Number: GB-MYLANLABS-2019M1036540

PATIENT
  Age: 78 Year
  Sex: Male

DRUGS (28)
  1. VINBLASTINE SULFATE. [Suspect]
     Active Substance: VINBLASTINE SULFATE
     Indication: METASTASES TO LUNG
     Dosage: UNK
  2. METHOTREXATE. [Suspect]
     Active Substance: METHOTREXATE
     Indication: LUNG CANCER METASTATIC
  3. EPIRUBICIN [Suspect]
     Active Substance: EPIRUBICIN
     Indication: METASTASIS
  4. CARBOPLATIN INJ. 50MG ^NK^ [Suspect]
     Active Substance: CARBOPLATIN
     Indication: METASTASES TO LUNG
     Dosage: UNK
  5. VINBLASTINE SULFATE. [Suspect]
     Active Substance: VINBLASTINE SULFATE
     Indication: TRANSITIONAL CELL CARCINOMA
  6. VINBLASTINE SULFATE. [Suspect]
     Active Substance: VINBLASTINE SULFATE
     Indication: METASTATIC LYMPHOMA
  7. EPIRUBICIN [Suspect]
     Active Substance: EPIRUBICIN
     Indication: LUNG CANCER METASTATIC
  8. EPIRUBICIN [Suspect]
     Active Substance: EPIRUBICIN
     Indication: METASTATIC LYMPHOMA
  9. VINBLASTINE SULFATE. [Suspect]
     Active Substance: VINBLASTINE SULFATE
     Indication: LUNG CANCER METASTATIC
  10. METHOTREXATE. [Suspect]
     Active Substance: METHOTREXATE
     Indication: TRANSITIONAL CELL CARCINOMA
     Dosage: UNK
  11. METHOTREXATE. [Suspect]
     Active Substance: METHOTREXATE
     Indication: TRANSITIONAL CELL CARCINOMA
  12. EPIRUBICIN [Suspect]
     Active Substance: EPIRUBICIN
     Indication: METASTASES TO LUNG
     Dosage: UNK
  13. CARBOPLATIN INJ. 50MG ^NK^ [Suspect]
     Active Substance: CARBOPLATIN
     Indication: LUNG CANCER METASTATIC
  14. CARBOPLATIN INJ. 50MG ^NK^ [Suspect]
     Active Substance: CARBOPLATIN
     Indication: TRANSITIONAL CELL CARCINOMA
  15. VINBLASTINE SULFATE. [Suspect]
     Active Substance: VINBLASTINE SULFATE
     Indication: METASTASES TO LYMPH NODES
  16. EPIRUBICIN [Suspect]
     Active Substance: EPIRUBICIN
     Indication: METASTASES TO LYMPH NODES
  17. CARBOPLATIN INJ. 50MG ^NK^ [Suspect]
     Active Substance: CARBOPLATIN
     Indication: METASTASIS
     Dosage: UNK, CYCLE
     Route: 065
     Dates: start: 201410, end: 2015
  18. CARBOPLATIN INJ. 50MG ^NK^ [Suspect]
     Active Substance: CARBOPLATIN
     Indication: METASTASES TO LYMPH NODES
  19. METHOTREXATE. [Suspect]
     Active Substance: METHOTREXATE
     Indication: METASTASES TO LYMPH NODES
  20. CARBOPLATIN INJ. 50MG ^NK^ [Suspect]
     Active Substance: CARBOPLATIN
     Indication: TRANSITIONAL CELL CARCINOMA
  21. CARBOPLATIN INJ. 50MG ^NK^ [Suspect]
     Active Substance: CARBOPLATIN
     Indication: METASTATIC LYMPHOMA
  22. METHOTREXATE. [Suspect]
     Active Substance: METHOTREXATE
     Indication: METASTASIS
  23. VINBLASTINE SULFATE. [Suspect]
     Active Substance: VINBLASTINE SULFATE
     Indication: TRANSITIONAL CELL CARCINOMA
     Dosage: UNK UNK, CYCLE
     Route: 065
     Dates: start: 201410, end: 2015
  24. METHOTREXATE. [Suspect]
     Active Substance: METHOTREXATE
     Indication: METASTASES TO LUNG
     Dosage: UNK UNK, CYCLE
     Route: 065
     Dates: start: 201410, end: 2015
  25. EPIRUBICIN [Suspect]
     Active Substance: EPIRUBICIN
     Indication: TRANSITIONAL CELL CARCINOMA
     Dosage: UNK UNK, CYCLE
     Route: 065
     Dates: start: 201410, end: 2015
  26. EPIRUBICIN [Suspect]
     Active Substance: EPIRUBICIN
     Indication: TRANSITIONAL CELL CARCINOMA
  27. VINBLASTINE SULFATE. [Suspect]
     Active Substance: VINBLASTINE SULFATE
     Indication: METASTASIS
  28. METHOTREXATE. [Suspect]
     Active Substance: METHOTREXATE
     Indication: METASTATIC LYMPHOMA

REACTIONS (1)
  - Major depression [Unknown]

NARRATIVE: CASE EVENT DATE: 2015
